FAERS Safety Report 15859807 (Version 1)
Quarter: 2019Q1

REPORT INFORMATION
  Report Type: Spontaneous
  Country: US (occurrence: US)
  Receive Date: 20190123
  Receipt Date: 20190123
  Transmission Date: 20190417
  Serious: No
  Sender: FDA-Public Use
  Company Number: US-ABBVIE-18P-163-2575338-00

PATIENT
  Age: 32 Year
  Sex: Female

DRUGS (1)
  1. ORILISSA [Suspect]
     Active Substance: ELAGOLIX SODIUM
     Indication: ENDOMETRIOSIS
     Route: 048
     Dates: start: 20181115

REACTIONS (4)
  - Anxiety [Not Recovered/Not Resolved]
  - Panic attack [Unknown]
  - Tremor [Unknown]
  - Chest discomfort [Unknown]

NARRATIVE: CASE EVENT DATE: 201811
